FAERS Safety Report 5650327-0 (Version None)
Quarter: 2008Q1

REPORT INFORMATION
  Report Type: 
  Country: None (occurrence: None)
  Receive Date: 20080304
  Receipt Date: 20080304
  Transmission Date: 20080703
  Serious: Yes (Hospitalization)
  Sender: FDA-Public Use
  Company Number: None

PATIENT
  Age: 63 Year
  Sex: Female
  Weight: 78.0187 kg

DRUGS (5)
  1. GEMCITABINE [Suspect]
     Indication: PANCREATIC DISORDER
     Dosage: 1780 MG ONCE A WEEK 3 WEEKS IV
     Route: 042
     Dates: start: 20080205
  2. GEMCITABINE [Suspect]
     Indication: PANCREATIC DISORDER
     Dosage: 1780 MG ONCE A WEEK 3 WEEKS IV
     Route: 042
     Dates: start: 20080212
  3. GEMCITABINE [Suspect]
     Indication: PANCREATIC DISORDER
     Dosage: 1780 MG ONCE A WEEK 3 WEEKS IV
     Route: 042
     Dates: start: 20080214
  4. GEMCITABINE [Suspect]
  5. LAPATINIB [Suspect]
     Dosage: 1500 MG ONCE A DAY PO
     Route: 048
     Dates: start: 20080205, end: 20080225

REACTIONS (8)
  - CELLULITIS [None]
  - CHILLS [None]
  - DEHYDRATION [None]
  - ERYTHEMA [None]
  - OEDEMA PERIPHERAL [None]
  - PYREXIA [None]
  - SKIN INFECTION [None]
  - TENDERNESS [None]
